FAERS Safety Report 15277238 (Version 1)
Quarter: 2018Q3

REPORT INFORMATION
  Report Type: Report from Study
  Country: NL (occurrence: NL)
  Receive Date: 20180814
  Receipt Date: 20180814
  Transmission Date: 20181010
  Serious: Yes (Hospitalization)
  Sender: FDA-Public Use
  Company Number: NL-VERTEX PHARMACEUTICALS-2018-005619

PATIENT
  Sex: Male

DRUGS (4)
  1. ORKAMBI [Suspect]
     Active Substance: IVACAFTOR\LUMACAFTOR
     Dosage: 2 DOSAGE FORM, QD
     Route: 048
     Dates: start: 2017, end: 2017
  2. ORKAMBI [Suspect]
     Active Substance: IVACAFTOR\LUMACAFTOR
     Dosage: 2 DOSAGE FORM, BID
     Route: 048
     Dates: start: 2017, end: 20180709
  3. ORKAMBI [Suspect]
     Active Substance: IVACAFTOR\LUMACAFTOR
     Indication: CYSTIC FIBROSIS
     Dosage: 1 DOSAGE FORM, QD
     Route: 048
     Dates: start: 201711, end: 2017
  4. ORKAMBI [Suspect]
     Active Substance: IVACAFTOR\LUMACAFTOR
     Dosage: 3 DOSAGE FORM, QD
     Route: 048
     Dates: start: 2017, end: 2017

REACTIONS (14)
  - Blood glucose increased [Unknown]
  - Depression [Unknown]
  - Lip dry [Unknown]
  - Fluid retention [Unknown]
  - Epistaxis [Unknown]
  - Fatigue [Unknown]
  - Productive cough [Unknown]
  - Abdominal pain [Unknown]
  - Diarrhoea [Unknown]
  - Thirst [Unknown]
  - Abdominal distension [Unknown]
  - Influenza [Recovered/Resolved with Sequelae]
  - Back pain [Unknown]
  - Gastrointestinal disorder [Unknown]

NARRATIVE: CASE EVENT DATE: 201712
